FAERS Safety Report 9944427 (Version 1)
Quarter: 2014Q1

REPORT INFORMATION
  Report Type: Report from Study
  Country: US (occurrence: US)
  Receive Date: 20140303
  Receipt Date: 20140303
  Transmission Date: 20141002
  Serious: No
  Sender: FDA-Public Use
  Company Number: US-ABBVIE-13P-163-1048692-00

PATIENT
  Age: 56 Year
  Sex: Female

DRUGS (6)
  1. HUMIRA [Suspect]
     Indication: CROHN^S DISEASE
     Dates: start: 201106
  2. ASACOL [Concomitant]
     Indication: CROHN^S DISEASE
  3. AZATHIOPRINE [Concomitant]
     Indication: CROHN^S DISEASE
     Dosage: EVERY AM
  4. METFORMIN HCL [Concomitant]
     Indication: DIABETES PROPHYLAXIS
     Dosage: 500MG DAILY
  5. SIMVASTATIN [Concomitant]
     Indication: BLOOD CHOLESTEROL
     Dosage: AT HOUR OF SLEEP
  6. HYDROXYZINE PAM [Concomitant]
     Indication: INSOMNIA
     Dosage: 1 HOUR OF SLEEP

REACTIONS (9)
  - Device malfunction [Unknown]
  - Device malfunction [Unknown]
  - Device malfunction [Unknown]
  - Device malfunction [Unknown]
  - Injection site bruising [Recovering/Resolving]
  - Drug dose omission [Unknown]
  - Drug dose omission [Unknown]
  - Drug dose omission [Unknown]
  - Drug dose omission [Unknown]
